FAERS Safety Report 5982893-X (Version None)
Quarter: 2008Q4

REPORT INFORMATION
  Report Type: 
  Country: None (occurrence: None)
  Receive Date: 20081208
  Receipt Date: 20081128
  Transmission Date: 20090506
  Serious: Yes (Hospitalization)
  Sender: FDA-Public Use
  Company Number: DE-AMGEN-US321346

PATIENT
  Sex: Female
  Weight: 48 kg

DRUGS (3)
  1. ENBREL [Suspect]
     Indication: RHEUMATOID ARTHRITIS
     Route: 058
     Dates: start: 20070518
  2. ENBREL [Suspect]
     Route: 058
     Dates: start: 20070101, end: 20071026
  3. ENBREL [Suspect]
     Route: 058
     Dates: start: 20071208

REACTIONS (4)
  - ARTHRODESIS [None]
  - SYNOVECTOMY [None]
  - TENOLYSIS [None]
  - TENOTOMY [None]
